FAERS Safety Report 9451592 (Version 1)
Quarter: 2013Q3

REPORT INFORMATION
  Report Type: Report from Study
  Country: US (occurrence: US)
  Receive Date: 20130811
  Receipt Date: 20130811
  Transmission Date: 20140515
  Serious: Yes (Hospitalization)
  Sender: FDA-Public Use
  Company Number: US-CUBIST PHARMACEUTICALS, INC.-2013CBST000286

PATIENT
  Sex: 0

DRUGS (9)
  1. CUBICIN [Suspect]
     Indication: ANTIBIOTIC THERAPY
     Dosage: UNK UNK, UNK
     Route: 065
  2. CUBICIN [Suspect]
     Indication: STAPHYLOCOCCAL BACTERAEMIA
     Dosage: 2000 MG, UNK
     Route: 065
     Dates: start: 20120921, end: 20120921
  3. CUBICIN [Suspect]
     Dosage: 1000 MG, Q8H
     Route: 065
     Dates: start: 20120921, end: 20120929
  4. CUBICIN [Suspect]
     Dosage: 2000 MG, Q8H
     Route: 065
     Dates: start: 20120929, end: 20121002
  5. CUBICIN [Suspect]
     Dosage: 1500 MG, Q8H
     Route: 065
     Dates: start: 20121002, end: 20121005
  6. CUBICIN [Suspect]
     Dosage: 1000 MG, Q24H
     Dates: start: 20121005, end: 20121027
  7. UNASYN                             /00917901/ [Concomitant]
     Indication: ANTIBIOTIC THERAPY
     Dosage: UNK UNK, UNK
     Route: 065
  8. ZYVOX [Concomitant]
     Indication: ANTIBIOTIC THERAPY
     Route: 065
  9. MAXIPIME [Concomitant]
     Indication: ANTIBIOTIC THERAPY
     Dosage: UNK UNK, UNK
     Route: 065

REACTIONS (3)
  - Skin infection [Recovered/Resolved]
  - Overdose [Recovered/Resolved]
  - Soft tissue infection [Recovered/Resolved]
